FAERS Safety Report 23964413 (Version 1)
Quarter: 2024Q2

REPORT INFORMATION
  Report Type: Spontaneous
  Country: BE (occurrence: BE)
  Receive Date: 20240612
  Receipt Date: 20240612
  Transmission Date: 20240715
  Serious: Yes (Other)
  Sender: FDA-Public Use
  Company Number: BE-ELI_LILLY_AND_COMPANY-BE202406002535

PATIENT
  Sex: Male

DRUGS (2)
  1. RETEVMO [Suspect]
     Active Substance: SELPERCATINIB
     Indication: Product used for unknown indication
     Dosage: UNK, UNKNOWN
     Route: 065
  2. RETEVMO [Suspect]
     Active Substance: SELPERCATINIB
     Dosage: UNK, UNKNOWN
     Route: 065

REACTIONS (2)
  - Hepatotoxicity [Recovered/Resolved]
  - Neuropathy peripheral [Unknown]
